FAERS Safety Report 12009382 (Version 1)
Quarter: 2016Q1

REPORT INFORMATION
  Report Type: Report from Study
  Country: US (occurrence: US)
  Receive Date: 20160205
  Receipt Date: 20160205
  Transmission Date: 20160526
  Serious: Yes (Other)
  Sender: FDA-Public Use
  Company Number: US-ACCORD-037487

PATIENT
  Age: 10 Year
  Sex: Female

DRUGS (7)
  1. CYCLOPHOSPHAMIDE/CYCLOPHOSPHAMIDE MONOHYDRATE [Concomitant]
  2. SULFAMETHOXAZOLE/TRIMETHOPRIM [Concomitant]
  3. TIOGUANINE [Concomitant]
     Active Substance: THIOGUANINE ANHYDROUS
  4. METHOTREXATE [Suspect]
     Active Substance: METHOTREXATE
     Indication: ACUTE LYMPHOCYTIC LEUKAEMIA
     Route: 037
  5. MESNA. [Concomitant]
     Active Substance: MESNA
  6. CYTARABINE/CYTARABINE HYDROCHLORIDE/CYTARABINE OCFOSFATE [Concomitant]
  7. ONDANSETRON [Concomitant]
     Active Substance: ONDANSETRON

REACTIONS (3)
  - Neurotoxicity [Unknown]
  - Abasia [Unknown]
  - Muscular weakness [Unknown]
